FAERS Safety Report 25718267 (Version 1)
Quarter: 2025Q3

REPORT INFORMATION
  Report Type: Spontaneous
  Country: TR (occurrence: TR)
  Receive Date: 20250823
  Receipt Date: 20250823
  Transmission Date: 20251021
  Serious: Yes (Hospitalization)
  Sender: MACLEODS
  Company Number: TR-MLMSERVICE-20250804-PI601301-00130-1

PATIENT

DRUGS (1)
  1. TENOFOVIR [Suspect]
     Active Substance: TENOFOVIR
     Indication: Hepatitis B
     Route: 065

REACTIONS (5)
  - Hypophosphataemic osteomalacia [Unknown]
  - Femoral neck fracture [Unknown]
  - Osteoporosis [Unknown]
  - Acidosis hyperchloraemic [Unknown]
  - Renal tubular dysfunction [Unknown]
